FAERS Safety Report 9021293 (Version 1)
Quarter: 2013Q1

REPORT INFORMATION
  Report Type: Spontaneous
  Country: None (occurrence: US)
  Receive Date: 20130119
  Receipt Date: 20130119
  Transmission Date: 20140127
  Serious: No
  Sender: FDA-Public Use
  Company Number: US-ALLERGAN-1202978US

PATIENT
  Sex: Male

DRUGS (2)
  1. BOTOX? [Suspect]
     Indication: TORTICOLLIS
     Dosage: UNK
     Route: 030
     Dates: start: 201201, end: 201201
  2. BOTOX? [Suspect]
     Dosage: UNK
     Route: 030
     Dates: start: 201109, end: 201109

REACTIONS (1)
  - Drug ineffective [Unknown]
